FAERS Safety Report 9219944 (Version 1)
Quarter: 2013Q2

REPORT INFORMATION
  Report Type: Spontaneous
  Country: US (occurrence: US)
  Receive Date: 20130409
  Receipt Date: 20130409
  Transmission Date: 20140414
  Serious: Yes (Hospitalization)
  Sender: FDA-Public Use
  Company Number: US-B.I. PHARMACEUTICALS,INC./RIDGEFIELD-2013-BI-09018BP

PATIENT
  Age: 70 Year
  Sex: Female
  Weight: 66 kg

DRUGS (19)
  1. SPIRIVA [Suspect]
     Indication: CHRONIC OBSTRUCTIVE PULMONARY DISEASE
     Dosage: 18 MCG
     Route: 055
     Dates: start: 2010
  2. SPIRIVA [Suspect]
     Route: 048
     Dates: start: 20130402, end: 20130402
  3. SYMBICORT [Concomitant]
  4. BACTRIM [Concomitant]
  5. PREDNISONE [Concomitant]
  6. MYCOPHENOLATE [Concomitant]
  7. CARDIZEM [Concomitant]
  8. PROTONIX [Concomitant]
  9. VITAMIN B12 [Concomitant]
  10. IRON [Concomitant]
  11. LASIX [Concomitant]
  12. ALDACTONE [Concomitant]
  13. XANAX [Concomitant]
  14. CELEXA [Concomitant]
  15. FLONASE [Concomitant]
  16. VICODAN [Concomitant]
  17. SYNTHROID [Concomitant]
  18. VENTOLIN [Concomitant]
  19. DESYREL [Concomitant]

REACTIONS (6)
  - Dyspnoea [Not Recovered/Not Resolved]
  - Pulmonary hypertension [Not Recovered/Not Resolved]
  - Autoimmune disorder [Recovered/Resolved]
  - Lung disorder [Not Recovered/Not Resolved]
  - CREST syndrome [Not Recovered/Not Resolved]
  - Wrong technique in drug usage process [Recovered/Resolved]
